FAERS Safety Report 7367770-4 (Version None)
Quarter: 2011Q1

REPORT INFORMATION
  Report Type: 
  Country: None (occurrence: None)
  Receive Date: 20110304
  Receipt Date: 20110302
  Transmission Date: 20110831
  Serious: Yes (Other)
  Sender: FDA-Public Use
  Company Number: B0703447A

PATIENT
  Age: 85 Year
  Sex: Male

DRUGS (4)
  1. FLUCONAZOLE [Concomitant]
  2. ORNIDAZOLE [Concomitant]
  3. MEROPENEM (FORMULATION UNKNOWN) (MEROPENEM) [Suspect]
     Dosage: ORAL
     Route: 048
  4. CEFTAZIDIME SODIUM [Suspect]
     Dosage: INTRAVENOUS
     Route: 042

REACTIONS (5)
  - ENCEPHALOPATHY [None]
  - CONVULSION [None]
  - COMA [None]
  - ENTEROBACTER INFECTION [None]
  - CULTURE POSITIVE [None]
